FAERS Safety Report 10102288 (Version 1)
Quarter: 2014Q2

REPORT INFORMATION
  Report Type: Spontaneous
  Country: US (occurrence: US)
  Receive Date: 20140424
  Receipt Date: 20140424
  Transmission Date: 20141212
  Serious: Yes (Hospitalization)
  Sender: FDA-Public Use
  Company Number: US-ACTELION-A-NJ2014-97571

PATIENT
  Age: 51 Year
  Sex: Female

DRUGS (3)
  1. TRACLEER [Suspect]
     Indication: SYSTEMIC LUPUS ERYTHEMATOSUS
     Dosage: UNK
     Route: 048
  2. COUMADIN [Suspect]
  3. SILDENAFIL [Concomitant]

REACTIONS (1)
  - Blood disorder [Unknown]
